FAERS Safety Report 6034346-0 (Version None)
Quarter: 2009Q1

REPORT INFORMATION
  Report Type: 
  Country: None (occurrence: None)
  Receive Date: 20090112
  Receipt Date: 20081114
  Transmission Date: 20090719
  Serious: Yes (Hospitalization, Other)
  Sender: FDA-Public Use
  Company Number: FR-PFIZER INC-2008083652

PATIENT

DRUGS (1)
  1. CHAMPIX [Suspect]

REACTIONS (3)
  - COORDINATION ABNORMAL [None]
  - DYSARTHRIA [None]
  - PARAESTHESIA [None]
